FAERS Safety Report 11271197 (Version 3)
Quarter: 2016Q1

REPORT INFORMATION
  Report Type: Spontaneous
  Country: US (occurrence: US)
  Receive Date: 20150714
  Receipt Date: 20160204
  Transmission Date: 20160525
  Serious: Yes (Hospitalization, Congenital Anomaly, Other)
  Sender: FDA-Public Use
  Company Number: US-APOTEX-2015AP008524

PATIENT

DRUGS (3)
  1. PHENERGAN WITH DEXTROMETHORPHAN [Concomitant]
     Indication: PRODUCT USED FOR UNKNOWN INDICATION
     Dosage: 2 TSP(S) PER ORAL, Q 4 HR
     Route: 064
  2. ALCOHOL. [Concomitant]
     Active Substance: ALCOHOL
     Indication: PRODUCT USED FOR UNKNOWN INDICATION
     Route: 064
  3. PAXIL [Suspect]
     Active Substance: PAROXETINE HYDROCHLORIDE
     Indication: ANXIETY
     Dosage: UNK
     Route: 064

REACTIONS (12)
  - Congenital ureterocele [Unknown]
  - Viral infection [Unknown]
  - Renal disorder [Unknown]
  - Congenital central nervous system anomaly [Unknown]
  - Urinary tract infection [Unknown]
  - Sepsis [Recovered/Resolved]
  - Aspiration [Recovered/Resolved]
  - Foetal exposure during pregnancy [Unknown]
  - Congenital gastric anomaly [Unknown]
  - Meningitis [Unknown]
  - Bacteraemia [Unknown]
  - Hydronephrosis [Unknown]
